FAERS Safety Report 4571854-3 (Version None)
Quarter: 2005Q1

REPORT INFORMATION
  Report Type: 
  Country: None (occurrence: None)
  Receive Date: 20050207
  Receipt Date: 20050126
  Transmission Date: 20050727
  Serious: Yes (Hospitalization)
  Sender: FDA-Public Use
  Company Number: PHBS2005HU01665

PATIENT
  Age: 71 Year
  Sex: Female

DRUGS (2)
  1. CARBAMAZEPINE [Suspect]
     Indication: TRIGEMINAL NEURALGIA
     Route: 065
  2. DIURETICS [Suspect]
     Indication: HYPERTENSION

REACTIONS (16)
  - CONFUSIONAL STATE [None]
  - COORDINATION ABNORMAL [None]
  - DIZZINESS [None]
  - DYSKINESIA [None]
  - ELECTROENCEPHALOGRAM ABNORMAL [None]
  - GASTROINTESTINAL INFECTION [None]
  - HEADACHE [None]
  - HYPERREFLEXIA [None]
  - HYPONATRAEMIA [None]
  - METABOLIC ENCEPHALOPATHY [None]
  - NERVE CONDUCTION STUDIES ABNORMAL [None]
  - PARAESTHESIA [None]
  - REFLEXES ABNORMAL [None]
  - SENSORY DISTURBANCE [None]
  - SOMNOLENCE [None]
  - VOMITING [None]
